FAERS Safety Report 8017727-5 (Version None)
Quarter: 2012Q1

REPORT INFORMATION
  Report Type: 
  Country: None (occurrence: None)
  Receive Date: 20120103
  Receipt Date: 20111227
  Transmission Date: 20120608
  Serious: No
  Sender: FDA-Public Use
  Company Number: US-PFIZER INC-2011315935

PATIENT
  Sex: Female
  Weight: 70.295 kg

DRUGS (11)
  1. FIORINAL [Suspect]
     Dosage: UNK
  2. PAMELOR [Suspect]
     Dosage: UNK
  3. VICODIN [Suspect]
     Dosage: UNK
  4. POTASSIUM PENICILLIN G [Suspect]
     Dosage: UNK
  5. SKELAXIN [Suspect]
     Dosage: UNK
  6. NICORETTE [Suspect]
     Dosage: UNK
  7. ELAVIL [Suspect]
     Dosage: UNK
  8. LORAZEPAM [Suspect]
     Dosage: UNK
  9. MELLARIL [Suspect]
     Dosage: UNK
  10. PERCOCET [Suspect]
     Dosage: UNK
  11. DARVOCET [Suspect]
     Dosage: UNK

REACTIONS (1)
  - DRUG HYPERSENSITIVITY [None]
